FAERS Safety Report 24380014 (Version 2)
Quarter: 2024Q4

REPORT INFORMATION
  Report Type: Report from Study
  Country: US (occurrence: US)
  Receive Date: 20240930
  Receipt Date: 20241125
  Transmission Date: 20250115
  Serious: No
  Sender: SUNOVION
  Company Number: US-SUMITOMO PHARMA SWITZERLAND GMBH-2024SPA002926

PATIENT

DRUGS (2)
  1. ORGOVYX [Suspect]
     Active Substance: RELUGOLIX
     Indication: Prostate cancer
     Dosage: 120 MG, QD
     Route: 048
     Dates: start: 20240912
  2. XTANDI [Concomitant]
     Active Substance: ENZALUTAMIDE
     Dosage: UNK
     Route: 065

REACTIONS (7)
  - Vision blurred [Unknown]
  - Hot flush [Unknown]
  - Fatigue [Unknown]
  - Headache [Unknown]
  - Hyperhidrosis [Unknown]
  - Incorrect dose administered [Unknown]
  - Product dose omission issue [Unknown]
